FAERS Safety Report 9969145 (Version 1)
Quarter: 2014Q1

REPORT INFORMATION
  Report Type: Report from Study
  Country: US (occurrence: US)
  Receive Date: 20140306
  Receipt Date: 20140306
  Transmission Date: 20141002
  Serious: Yes (Other)
  Sender: FDA-Public Use
  Company Number: US-ROCHE-1340289

PATIENT
  Sex: Female

DRUGS (15)
  1. LUCENTIS [Suspect]
     Indication: RETINAL VEIN OCCLUSION
     Route: 050
  2. AVASTIN [Suspect]
     Indication: RETINAL VEIN OCCLUSION
     Route: 065
     Dates: start: 20110528
  3. GENTAMYCIN [Concomitant]
     Dosage: FOR 3 DAYS
     Route: 047
  4. NEO-SYNEPHRINE [Concomitant]
  5. ACIPHEX [Concomitant]
     Route: 048
  6. CELEBREX [Concomitant]
     Route: 048
  7. DETROL [Concomitant]
     Route: 048
  8. FLEXERIL (UNITED STATES) [Concomitant]
     Route: 048
  9. HYDROCHLOROTHIAZIDE [Concomitant]
     Route: 048
  10. LOMOTIL (UNITED STATES) [Concomitant]
     Dosage: 2.5-0.025 TABLETS
     Route: 048
  11. REQUIP [Concomitant]
     Route: 048
  12. SALSALATE [Concomitant]
     Route: 048
  13. SUCRALFATE [Concomitant]
     Route: 048
  14. ZOLOFT [Concomitant]
     Route: 048
  15. OMEPRAZOLE [Concomitant]
     Route: 048

REACTIONS (4)
  - Macular oedema [Unknown]
  - Angiogram abnormal [Unknown]
  - Vision blurred [Unknown]
  - Off label use [Unknown]
